FAERS Safety Report 5620548-1 (Version None)
Quarter: 2008Q1

REPORT INFORMATION
  Report Type: 
  Country: None (occurrence: None)
  Receive Date: 20080208
  Receipt Date: 20080128
  Transmission Date: 20080703
  Serious: Yes (Other)
  Sender: FDA-Public Use
  Company Number: ZA-ELI_LILLY_AND_COMPANY-ZA200709001466

PATIENT
  Sex: Male

DRUGS (3)
  1. STRATTERA [Suspect]
     Indication: ATTENTION DEFICIT/HYPERACTIVITY DISORDER
     Dosage: 10 MG, WEEKLY (1/W)
     Route: 048
     Dates: start: 20060725
  2. STRATTERA [Suspect]
     Dosage: 25 MG, UNKNOWN
     Route: 065
     Dates: start: 20070802
  3. STRATTERA [Suspect]
     Dosage: 18 MG, UNKNOWN
     Route: 065

REACTIONS (1)
  - GROWTH RETARDATION [None]
